FAERS Safety Report 8238615-5 (Version None)
Quarter: 2012Q1

REPORT INFORMATION
  Report Type: 
  Country: None (occurrence: None)
  Receive Date: 20120327
  Receipt Date: 20120321
  Transmission Date: 20120608
  Serious: Yes (Other)
  Sender: FDA-Public Use
  Company Number: ES-PFIZER INC-2012074843

PATIENT

DRUGS (1)
  1. MISOPROSTOL [Suspect]
     Dosage: 4000 UG, UNK
     Route: 064

REACTIONS (3)
  - OVERDOSE [None]
  - MATERNAL EXPOSURE TIMING UNSPECIFIED [None]
  - PREMATURE BABY [None]
